FAERS Safety Report 6706497-6 (Version None)
Quarter: 2010Q2

REPORT INFORMATION
  Report Type: 
  Country: None (occurrence: None)
  Receive Date: 20100428
  Receipt Date: 20100419
  Transmission Date: 20101027
  Serious: Yes (Hospitalization)
  Sender: FDA-Public Use
  Company Number: 2009-198860-NL

PATIENT
  Age: 32 Year
  Sex: Female
  Weight: 54.4316 kg

DRUGS (14)
  1. NUVARING [Suspect]
     Indication: CONTRACEPTION
     Dosage: VAG
     Route: 067
     Dates: start: 20070201, end: 20071004
  2. ZITHROMAX [Concomitant]
  3. HISTENEX [Concomitant]
  4. ORTHO TRI-CYCLEN LO [Concomitant]
  5. ORTHO CYCLEN-28 [Concomitant]
  6. DESOGEN [Concomitant]
  7. ORTHO-NOVUM 7/7/7-21 [Concomitant]
  8. DEPO-MEDROL [Concomitant]
  9. ZOFRAN [Concomitant]
  10. TRANSDERM SCOP [Concomitant]
  11. MEPERIDINE / PROMETHAZINE [Concomitant]
  12. DIAZEPAM [Concomitant]
  13. HYDROCODONE BITARTRATE AND ACETAMINOPHEN [Concomitant]
  14. ALBUTEROL [Concomitant]

REACTIONS (26)
  - ABDOMINAL PAIN [None]
  - ASTHENIA [None]
  - ATRIAL TACHYCARDIA [None]
  - BRONCHITIS [None]
  - CHEST PAIN [None]
  - DYSPNOEA [None]
  - FATIGUE [None]
  - HAEMOPTYSIS [None]
  - HYPERTENSION [None]
  - HYPOCOAGULABLE STATE [None]
  - HYPOPHAGIA [None]
  - INSOMNIA [None]
  - INTERNATIONAL NORMALISED RATIO DECREASED [None]
  - MAMMOPLASTY [None]
  - MULTIPLE ALLERGIES [None]
  - NON-CARDIAC CHEST PAIN [None]
  - PALPITATIONS [None]
  - PERIPHERAL COLDNESS [None]
  - PNEUMONIA [None]
  - PULMONARY EMBOLISM [None]
  - SINUSITIS [None]
  - SKIN DISCOLOURATION [None]
  - SPLINTER HAEMORRHAGES [None]
  - SUPRAVENTRICULAR EXTRASYSTOLES [None]
  - UPPER RESPIRATORY TRACT INFECTION [None]
  - WEIGHT DECREASED [None]
